FAERS Safety Report 4698888-2 (Version None)
Quarter: 2005Q2

REPORT INFORMATION
  Report Type: 
  Country: None (occurrence: None)
  Receive Date: 20050624
  Receipt Date: 20050616
  Transmission Date: 20051028
  Serious: Yes (Other)
  Sender: FDA-Public Use
  Company Number: 200515208US

PATIENT
  Age: 7 Year
  Sex: Male

DRUGS (1)
  1. DDAVP [Suspect]
     Dosage: DOSE: UNKNOWN

REACTIONS (2)
  - HALLUCINATION [None]
  - HYPERACUSIS [None]
